FAERS Safety Report 20834081 (Version 1)
Quarter: 2022Q2

REPORT INFORMATION
  Report Type: Spontaneous
  Country: US (occurrence: US)
  Receive Date: 20220516
  Receipt Date: 20220516
  Transmission Date: 20220721
  Serious: Yes (Other)
  Sender: FDA-Public Use
  Company Number: US-PFIZER INC-202101639365

PATIENT
  Age: 62 Year
  Sex: Female

DRUGS (1)
  1. TIKOSYN [Suspect]
     Active Substance: DOFETILIDE
     Dosage: 500 UG

REACTIONS (5)
  - Cardiomyopathy [Unknown]
  - Ventricular hypokinesia [Unknown]
  - Left ventricular dilatation [Unknown]
  - Ejection fraction decreased [Unknown]
  - Left ventricular end-diastolic pressure increased [Unknown]
